FAERS Safety Report 7740677-6 (Version None)
Quarter: 2011Q3

REPORT INFORMATION
  Report Type: 
  Country: None (occurrence: None)
  Receive Date: 20110909
  Receipt Date: 20110831
  Transmission Date: 20111222
  Serious: Yes (Other)
  Sender: FDA-Public Use
  Company Number: CA-JNJFOC-20110701993

PATIENT
  Sex: Female
  Weight: 101.4 kg

DRUGS (5)
  1. OXYCONTIN [Concomitant]
     Route: 065
  2. PERCOCET [Concomitant]
     Route: 065
  3. REMICADE [Suspect]
     Indication: CROHN'S DISEASE
     Route: 042
     Dates: start: 20081203
  4. REMICADE [Suspect]
     Route: 042
     Dates: start: 20110519
  5. PANTOPRAZOLE [Concomitant]
     Route: 065

REACTIONS (1)
  - CYSTOSCOPY [None]
